FAERS Safety Report 18734979 (Version 1)
Quarter: 2021Q1

REPORT INFORMATION
  Report Type: Report from Study
  Country: US (occurrence: US)
  Receive Date: 20210113
  Receipt Date: 20210113
  Transmission Date: 20210419
  Serious: Yes (Hospitalization, Other)
  Sender: FDA-Public Use
  Company Number: US-JNJFOC-20210109601

PATIENT

DRUGS (1)
  1. ULTRAM [Suspect]
     Active Substance: TRAMADOL HYDROCHLORIDE
     Indication: PAIN
     Route: 065

REACTIONS (7)
  - Hospitalisation [Unknown]
  - Wound complication [Unknown]
  - Pain [Unknown]
  - Device related infection [Unknown]
  - Knee arthroplasty [Unknown]
  - Embolism [Unknown]
  - Postoperative wound infection [Unknown]
